FAERS Safety Report 7855636 (Version 2)
Quarter: 2012Q4

REPORT INFORMATION
  Report Type: 
  Country: US (occurrence: US)
  Receive Date: 20110315
  Receipt Date: 20121101
  Transmission Date: 20130627
  Serious: Yes (Hospitalization, Other)
  Sender: FDA-Public Use
  Company Number: US-ELI_LILLY_AND_COMPANY-US201103003359

PATIENT
  Age: 37 Year
  Sex: Female

DRUGS (1)
  1. BYETTA [Suspect]
     Dates: start: 200703

REACTIONS (2)
  - Pancreatitis [Recovered/Resolved]
  - Bile duct stone [Recovered/Resolved]
